FAERS Safety Report 8834832 (Version 2)
Quarter: 2013Q1

REPORT INFORMATION
  Report Type: Spontaneous
  Country: JP (occurrence: None)
  Receive Date: 20121009
  Receipt Date: 20130213
  Transmission Date: 20140127
  Serious: Yes (Other)
  Sender: FDA-Public Use
  Company Number: ADR-2012-01817

PATIENT
  Sex: Male

DRUGS (1)
  1. GABALON [Suspect]

REACTIONS (3)
  - Drug effect increased [None]
  - Hypotonia [None]
  - Dysstasia [None]
